FAERS Safety Report 17792356 (Version 2)
Quarter: 2020Q2

REPORT INFORMATION
  Report Type: Spontaneous
  Country: JP (occurrence: JP)
  Receive Date: 20200515
  Receipt Date: 20200610
  Transmission Date: 20200714
  Serious: Yes (Hospitalization, Other)
  Sender: FDA-Public Use
  Company Number: JP-PFIZER INC-2020193158

PATIENT
  Age: 76 Year
  Sex: Male
  Weight: 57.2 kg

DRUGS (6)
  1. SAMSCA [Concomitant]
     Active Substance: TOLVAPTAN
     Dosage: 15 MG, 1X/DAY
     Route: 048
     Dates: start: 20191115
  2. AMIODARONE [Concomitant]
     Active Substance: AMIODARONE
     Dosage: 100 MG, 2X/DAY
     Route: 048
     Dates: start: 20190302
  3. FLUITRAN [Concomitant]
     Active Substance: TRICHLORMETHIAZIDE
     Dosage: 2 MG, 1X/DAY
     Route: 048
     Dates: start: 20190318
  4. AZOSEMIDE [Concomitant]
     Active Substance: AZOSEMIDE
     Dosage: 60 MG, 1X/DAY
     Route: 048
  5. LIXIANA [Concomitant]
     Active Substance: EDOXABAN TOSYLATE
     Dosage: 30 MG, 1X/DAY
     Route: 048
  6. VYNDAQEL [Suspect]
     Active Substance: TAFAMIDIS MEGLUMINE
     Indication: CARDIAC AMYLOIDOSIS
     Dosage: 80 MG, 1X/DAY
     Route: 048
     Dates: start: 20200204, end: 20200411

REACTIONS (6)
  - Haemoglobin decreased [Unknown]
  - Diffuse large B-cell lymphoma [Recovering/Resolving]
  - Lymphocyte count decreased [Unknown]
  - Eosinophil count decreased [Unknown]
  - Respiratory disorder [Unknown]
  - Neutrophil count increased [Unknown]

NARRATIVE: CASE EVENT DATE: 20200316
